FAERS Safety Report 17509584 (Version 3)
Quarter: 2020Q1

REPORT INFORMATION
  Report Type: Report from Study
  Country: GB (occurrence: GB)
  Receive Date: 20200306
  Receipt Date: 20200317
  Transmission Date: 20200409
  Serious: Yes (Hospitalization)
  Sender: FDA-Public Use
  Company Number: GB-ROCHE-2561310

PATIENT
  Age: 78 Year
  Sex: Male
  Weight: 68 kg

DRUGS (11)
  1. G-CSF [Suspect]
     Active Substance: GRANULOCYTE COLONY-STIMULATING FACTOR NOS
     Indication: DIFFUSE LARGE B-CELL LYMPHOMA
     Dosage: ON 22/FEB/2020, MOST RECENT DOSE OF G-CSF (30 MG/UNITS) WAS GIVEN.
     Route: 065
     Dates: start: 20191104
  2. SIMVASTATIN. [Concomitant]
     Active Substance: SIMVASTATIN
     Route: 048
  3. OMEPRAZOLE. [Concomitant]
     Active Substance: OMEPRAZOLE
     Route: 048
  4. BISOPROLOL [Concomitant]
     Active Substance: BISOPROLOL
     Route: 048
  5. ATEZOLIZUMAB. [Suspect]
     Active Substance: ATEZOLIZUMAB
     Indication: DIFFUSE LARGE B-CELL LYMPHOMA
     Dosage: ON 18/FEB/2020, MOST RECENT DOSE OF ATEZOLIZUMAB (840 MG) WAS GIVEN.
     Route: 041
  6. PIPERACILLIN AND TAZOBACTAM [Concomitant]
     Active Substance: PIPERACILLIN SODIUM\TAZOBACTAM SODIUM
     Route: 042
  7. GEMCITABINE. [Suspect]
     Active Substance: GEMCITABINE
     Indication: DIFFUSE LARGE B-CELL LYMPHOMA
     Dosage: ON 18/FEB/2020, MOST RECENT DOSE OF GEMCTABINE (1800 MG) WAS GIVEN.?DOSE: 1000 MG EVERY 14 DAYS
     Route: 041
     Dates: start: 20191031
  8. RITUXIMAB. [Suspect]
     Active Substance: RITUXIMAB
     Indication: DIFFUSE LARGE B-CELL LYMPHOMA
     Dosage: ON 18/FEB/2020, MOST RECENT DOSE OF RITUXIMAB (1400 MG) WAS GIVEN.
     Route: 042
     Dates: start: 20191031
  9. OXALIPLATIN. [Suspect]
     Active Substance: OXALIPLATIN
     Indication: DIFFUSE LARGE B-CELL LYMPHOMA
     Dosage: ON 18/FEB/2020, MOST RECENT DOSE OF OXALIPLATIN (180 MG) WAS GIVEN.?DOSE: 100 MG EVERY 14 DAYS
     Route: 041
     Dates: start: 20191031
  10. FINASTERIDE. [Concomitant]
     Active Substance: FINASTERIDE
     Route: 048
  11. RAMIPRIL. [Concomitant]
     Active Substance: RAMIPRIL
     Route: 048

REACTIONS (2)
  - Disease progression [Not Recovered/Not Resolved]
  - Decreased appetite [Unknown]

NARRATIVE: CASE EVENT DATE: 20200227
